FAERS Safety Report 5355697-9 (Version None)
Quarter: 2007Q2

REPORT INFORMATION
  Report Type: 
  Country: None (occurrence: None)
  Receive Date: 20070530
  Receipt Date: 20061120
  Transmission Date: 20071010
  Serious: Yes (Other)
  Sender: FDA-Public Use
  Company Number: US200610002475

PATIENT
  Sex: Male
  Weight: 93 kg

DRUGS (1)
  1. ZYPREXA [Suspect]
     Indication: ANXIETY DISORDER
     Dosage: EACH EVENING
     Dates: start: 19960101

REACTIONS (1)
  - PANCREATITIS [None]
